FAERS Safety Report 24659967 (Version 6)
Quarter: 2025Q1

REPORT INFORMATION
  Report Type: Report from Study
  Country: IT (occurrence: IT)
  Receive Date: 20241125
  Receipt Date: 20250326
  Transmission Date: 20250409
  Serious: Yes (Other)
  Sender: TAKEDA
  Company Number: IT-TAKEDA-2024TUS116317

PATIENT
  Age: 28 Year
  Sex: Male
  Weight: 60 kg

DRUGS (18)
  1. TEDUGLUTIDE [Suspect]
     Active Substance: TEDUGLUTIDE
     Indication: Short-bowel syndrome
     Dosage: 2.9 MILLIGRAM, QD
     Dates: start: 20201214
  2. TEDUGLUTIDE [Suspect]
     Active Substance: TEDUGLUTIDE
  3. TEDUGLUTIDE [Suspect]
     Active Substance: TEDUGLUTIDE
  4. TEDUGLUTIDE [Suspect]
     Active Substance: TEDUGLUTIDE
  5. RIFAXIMIN [Concomitant]
     Active Substance: RIFAXIMIN
     Indication: Diarrhoea
     Dosage: UNK UNK, TID
     Dates: start: 20230922
  6. CALCIFEDIOL [Concomitant]
     Active Substance: CALCIFEDIOL
     Indication: Vitamin D deficiency
     Dosage: 3 GTT DROPS, QD
     Route: 061
     Dates: start: 20240621
  7. ASPIRIN [Concomitant]
     Active Substance: ASPIRIN
     Indication: Thrombosis prophylaxis
     Dosage: 100 MILLIGRAM, QD
     Dates: start: 20240621
  8. VOLTAREN [Concomitant]
     Active Substance: DICLOFENAC SODIUM
     Indication: Pain
     Dosage: UNK UNK, SINGLE
     Dates: start: 20240614, end: 20240614
  9. SODIUM CHLORIDE [Concomitant]
     Active Substance: SODIUM CHLORIDE
     Indication: Dehydration
     Dosage: 500 MILLIGRAM, BID
     Dates: start: 20240620
  10. CLODRONATE DISODIUM [Concomitant]
     Active Substance: CLODRONATE DISODIUM
     Indication: Prophylaxis
     Dosage: UNK UNK, Q2WEEKS
     Dates: start: 20240122
  11. POTASSIUM CHLORIDE [Concomitant]
     Active Substance: POTASSIUM CHLORIDE
     Indication: Nutritional supplementation
     Dosage: UNK UNK, BID
     Dates: start: 20231124
  12. Dobetin [Concomitant]
     Indication: Vitamin supplementation
     Dosage: UNK UNK, 1/WEEK
     Dates: start: 20220908
  13. Folina [Concomitant]
     Indication: Vitamin supplementation
     Dosage: UNK UNK, 2/WEEK
     Dates: start: 20220908
  14. DEURSIL [Concomitant]
     Active Substance: URSODIOL
     Indication: Nephrolithiasis
     Dosage: 300 MILLIGRAM, BID
     Dates: start: 20200119
  15. Citrak [Concomitant]
     Indication: Nutritional supplementation
     Dosage: 999 INTERNATIONAL UNIT, TID
     Dates: start: 20190912
  16. Cacit [Concomitant]
     Indication: Osteoporosis
     Dosage: 1000 MILLIGRAM, BID
     Dates: start: 20190509
  17. Oligo essentiels cuivre [Concomitant]
     Indication: Nutritional supplementation
     Dosage: UNK UNK, QD
     Dates: start: 20220413
  18. MAGNESIUM [Concomitant]
     Active Substance: MAGNESIUM
     Indication: Mineral supplementation
     Dosage: UNK UNK, QD
     Dates: start: 20230802

REACTIONS (1)
  - Hepatic fibrosis [Recovered/Resolved]

NARRATIVE: CASE EVENT DATE: 20241024
